FAERS Safety Report 11399838 (Version 1)
Quarter: 2015Q3

REPORT INFORMATION
  Report Type: Spontaneous
  Country: FR (occurrence: FR)
  Receive Date: 20150820
  Receipt Date: 20150820
  Transmission Date: 20151125
  Serious: Yes (Hospitalization, Other)
  Sender: FDA-Public Use
  Company Number: FR-GLAXOSMITHKLINE-FR2015GSK118452

PATIENT
  Age: 82 Year
  Sex: Male

DRUGS (2)
  1. MABCAMPATH [Concomitant]
     Active Substance: ALEMTUZUMAB
     Indication: LYMPHOCYTOSIS
     Dosage: UNK
  2. ARZERRA [Suspect]
     Active Substance: OFATUMUMAB
     Indication: LYMPHOCYTOSIS
     Dosage: UNK UNK, CYC
     Route: 042
     Dates: start: 20130701, end: 20130708

REACTIONS (3)
  - Blood uric acid increased [Recovered/Resolved]
  - Blood lactate dehydrogenase increased [Recovered/Resolved]
  - Cytokine release syndrome [Recovered/Resolved]

NARRATIVE: CASE EVENT DATE: 20130708
